FAERS Safety Report 13670636 (Version 7)
Quarter: 2021Q4

REPORT INFORMATION
  Report Type: Spontaneous
  Country: JP (occurrence: JP)
  Receive Date: 20170620
  Receipt Date: 20211123
  Transmission Date: 20220303
  Serious: Yes (Life-Threatening, Hospitalization, Disabling, Other)
  Sender: FDA-Public Use
  Company Number: JP-MSD-1705JPN001414J

PATIENT
  Age: 76 Year
  Sex: Male
  Weight: 51 kg

DRUGS (15)
  1. CUBICIN [Suspect]
     Active Substance: DAPTOMYCIN
     Indication: Otitis externa
     Dosage: 525 MG, QD
     Route: 041
     Dates: start: 20160324, end: 20160414
  2. CIPROFLOXACIN [Suspect]
     Active Substance: CIPROFLOXACIN
     Indication: Otitis externa
     Dosage: 400 MILLIGRAM, TID
     Route: 041
     Dates: start: 20160324, end: 20160414
  3. NIFEDIPINE [Suspect]
     Active Substance: NIFEDIPINE
     Indication: Hypertension
     Dosage: 20 MG, BID
     Route: 048
     Dates: start: 20160228, end: 20160414
  4. BETAHISTINE MESILATE [Suspect]
     Active Substance: BETAHISTINE MESILATE
     Indication: Dizziness
     Dosage: 6 MILLIGRAM, TID
     Route: 048
     Dates: start: 20160324, end: 20160414
  5. ALLEGRA [Suspect]
     Active Substance: FEXOFENADINE HYDROCHLORIDE
     Indication: Eczema asteatotic
     Dosage: 60 MG, BID
     Route: 048
     Dates: start: 20160331, end: 20160414
  6. LANSOPRAZOLE [Concomitant]
     Active Substance: LANSOPRAZOLE
     Indication: Prophylaxis against gastrointestinal ulcer
     Dosage: 15 MG, QD
     Route: 048
     Dates: start: 20160324
  7. CALONAL [Concomitant]
     Active Substance: ACETAMINOPHEN
     Indication: Pain
     Dosage: 600 MG, QID
     Route: 048
     Dates: start: 20160324, end: 20160616
  8. MAGNESIUM OXIDE [Concomitant]
     Active Substance: MAGNESIUM OXIDE
     Indication: Constipation
     Dosage: 500 MG, TID
     Route: 048
     Dates: end: 20160616
  9. MIYA-BM [Concomitant]
     Active Substance: CLOSTRIDIUM BUTYRICUM SPORES STRAIN M-55
     Indication: Constipation
     Dosage: 1 DF, TID
     Route: 048
     Dates: start: 20160325, end: 20160603
  10. TORSEMIDE [Concomitant]
     Active Substance: TORSEMIDE
     Indication: Hypertension
     Dosage: 4 MILLIGRAM, TID
     Route: 048
     Dates: end: 20160421
  11. LOSARTAN POTASSIUM [Concomitant]
     Active Substance: LOSARTAN POTASSIUM
     Indication: Hypertension
     Dosage: 50 MG, QD
     Route: 048
     Dates: end: 20160421
  12. SULFAMETHOXAZOLE\TRIMETHOPRIM [Concomitant]
     Active Substance: SULFAMETHOXAZOLE\TRIMETHOPRIM
     Dosage: UNK
     Route: 048
     Dates: start: 20160415, end: 20160502
  13. PIPERACILLIN SODIUM\TAZOBACTAM SODIUM [Concomitant]
     Active Substance: PIPERACILLIN SODIUM\TAZOBACTAM SODIUM
     Dosage: UNK
     Route: 051
     Dates: start: 20160414
  14. VANCOMYCIN HYDROCHLORIDE [Concomitant]
     Active Substance: VANCOMYCIN HYDROCHLORIDE
     Dosage: UNK
     Route: 051
     Dates: start: 20160414
  15. GARENOXACIN MESYLATE [Concomitant]
     Active Substance: GARENOXACIN MESYLATE
     Dosage: UNK
     Route: 065

REACTIONS (4)
  - Lung disorder [Recovered/Resolved]
  - Cardiac failure [Recovering/Resolving]
  - Pancytopenia [Recovered/Resolved]
  - Acute kidney injury [Recovered/Resolved with Sequelae]

NARRATIVE: CASE EVENT DATE: 20160414
